FAERS Safety Report 8842270 (Version 1)
Quarter: 2012Q4

REPORT INFORMATION
  Report Type: Report from Study
  Country: US (occurrence: US)
  Receive Date: 20121016
  Receipt Date: 20121016
  Transmission Date: 20130627
  Serious: Yes (Other)
  Sender: FDA-Public Use
  Company Number: US-ABBOTT-12P-163-0991936-00

PATIENT
  Age: 53 Year
  Sex: Female
  Weight: 77.18 kg

DRUGS (2)
  1. HUMIRA [Suspect]
     Indication: ANKYLOSING SPONDYLITIS
     Dates: start: 2008
  2. ZOLOFT [Concomitant]
     Indication: DEPRESSION

REACTIONS (5)
  - Intervertebral disc protrusion [Not Recovered/Not Resolved]
  - Spinal column injury [Not Recovered/Not Resolved]
  - Neck pain [Not Recovered/Not Resolved]
  - Exostosis [Recovered/Resolved]
  - Road traffic accident [Recovered/Resolved]
